FAERS Safety Report 9828438 (Version 3)
Quarter: 2014Q2

REPORT INFORMATION
  Report Type: Spontaneous
  Country: JP (occurrence: JP)
  Receive Date: 20140117
  Receipt Date: 20140426
  Transmission Date: 20141212
  Serious: Yes (Death, Other)
  Sender: FDA-Public Use
  Company Number: JP-009507513-1401JPN006020

PATIENT
  Age: 90 Year
  Sex: Male

DRUGS (8)
  1. STROMECTOL TABLETS 3 MG [Suspect]
     Indication: ACARODERMATITIS
     Dosage: THE FIRST DOSE,9 MG, 1 DAY
     Route: 048
     Dates: start: 20131206, end: 20131206
  2. STROMECTOL TABLETS 3 MG [Suspect]
     Dosage: THE SECOND DOSE, 9 MG, 1 DAY
     Route: 048
     Dates: start: 20131213, end: 20131213
  3. URIEF [Concomitant]
     Dosage: 4 MG, BID
     Route: 048
  4. NITOROL [Concomitant]
     Dosage: 20 MG, BID
     Route: 048
  5. DIGOSIN [Concomitant]
     Dosage: 0.125 MG, QD
     Route: 048
  6. ALANTA SF [Concomitant]
     Dosage: 100 MG, BID
     Route: 048
  7. CLEANAL [Concomitant]
     Dosage: 200 MG, TID
     Route: 048
  8. BUFFERIN [Concomitant]
     Dosage: 81 MG, QD
     Route: 048

REACTIONS (4)
  - Cardiac arrest [Fatal]
  - Platelet count decreased [Fatal]
  - Rash [Unknown]
  - Inappropriate schedule of drug administration [Unknown]
